FAERS Safety Report 15931270 (Version 1)
Quarter: 2019Q1

REPORT INFORMATION
  Report Type: Spontaneous
  Country: FR (occurrence: FR)
  Receive Date: 20190207
  Receipt Date: 20190207
  Transmission Date: 20190417
  Serious: Yes (Other)
  Sender: FDA-Public Use
  Company Number: FR-AUROBINDO-AUR-APL-2019-006151

PATIENT
  Age: 62 Year
  Sex: Female
  Weight: 60 kg

DRUGS (3)
  1. PARACETAMOL FILM-COATED TABLET [Suspect]
     Active Substance: ACETAMINOPHEN
     Indication: INFLUENZA LIKE ILLNESS
     Dosage: 0.1429 G IN DAY, TOTAL DOSE: 1G IN A WEEK
     Route: 048
     Dates: start: 19990601
  2. NUROFEN [Suspect]
     Active Substance: IBUPROFEN
     Indication: INFLUENZA LIKE ILLNESS
     Dosage: 57.1429 MG IN DAY, TOTAL DOSE TAKEN 400 MG IN A WEEK.
     Route: 048
     Dates: start: 19990601
  3. AVONEX [Suspect]
     Active Substance: INTERFERON BETA-1A
     Indication: INFLUENZA LIKE ILLNESS
     Dosage: 4.2857 IN DAY, TOTAL DOSE 30 MICROGRAM IN A WEEK
     Route: 030
     Dates: start: 19990601

REACTIONS (3)
  - Rash [Not Recovered/Not Resolved]
  - Hyperkeratosis [Not Recovered/Not Resolved]
  - Porokeratosis [Not Recovered/Not Resolved]

NARRATIVE: CASE EVENT DATE: 20110404
